FAERS Safety Report 14496592 (Version 1)
Quarter: 2018Q1

REPORT INFORMATION
  Report Type: Spontaneous
  Country: US (occurrence: US)
  Receive Date: 20180206
  Receipt Date: 20180206
  Transmission Date: 20180509
  Serious: Yes (Death, Hospitalization)
  Sender: FDA-Public Use
  Company Number: None

PATIENT
  Age: 76 Year
  Sex: Male

DRUGS (1)
  1. LETAIRIS [Suspect]
     Active Substance: AMBRISENTAN
     Indication: HEART DISEASE CONGENITAL
     Route: 048
     Dates: start: 20160212, end: 20160921

REACTIONS (3)
  - Cor pulmonale [None]
  - Acute respiratory failure [None]
  - Pulmonary arterial hypertension [None]

NARRATIVE: CASE EVENT DATE: 20160907
